FAERS Safety Report 7509783-5 (Version None)
Quarter: 2011Q2

REPORT INFORMATION
  Report Type: 
  Country: None (occurrence: None)
  Receive Date: 20110519
  Receipt Date: 20110505
  Transmission Date: 20111010
  Serious: Yes (Hospitalization)
  Sender: FDA-Public Use
  Company Number: 2011MA005443

PATIENT
  Age: 89 Year
  Sex: Female

DRUGS (7)
  1. SPIRONOLACTONE [Suspect]
     Dosage: 25MG; QD
  2. AMLODIPINE [Concomitant]
  3. RALOXIFENE HCL [Concomitant]
  4. PAROXETINE HCL [Concomitant]
  5. LIMAPROST ALFADEX [Concomitant]
  6. MECOBALAMIN [Concomitant]
  7. ETODOLAC [Concomitant]

REACTIONS (7)
  - ALANINE AMINOTRANSFERASE INCREASED [None]
  - INAPPROPRIATE ANTIDIURETIC HORMONE SECRETION [None]
  - NAUSEA [None]
  - DECREASED APPETITE [None]
  - FEMORAL NECK FRACTURE [None]
  - HYPONATRAEMIA [None]
  - ASPARTATE AMINOTRANSFERASE INCREASED [None]
